FAERS Safety Report 6419457-X (Version None)
Quarter: 2009Q4

REPORT INFORMATION
  Report Type: 
  Country: None (occurrence: None)
  Receive Date: 20091013
  Receipt Date: 20090721
  Transmission Date: 20100525
  Serious: Yes (Other)
  Sender: FDA-Public Use
  Company Number: 1000006581

PATIENT
  Age: 58 Year
  Sex: Male

DRUGS (3)
  1. LEXAPRO [Suspect]
     Indication: DEPRESSION
     Dosage: 10 MG (10 MG, 1 IN 1 D), ORAL
     Route: 048
     Dates: start: 20090301, end: 20090511
  2. TOPROL-XL [Concomitant]
  3. LIPITOR [Concomitant]

REACTIONS (4)
  - ANGER [None]
  - DELUSION [None]
  - IRRITABILITY [None]
  - MANIA [None]
